FAERS Safety Report 6298489-9 (Version None)
Quarter: 2009Q3

REPORT INFORMATION
  Report Type: 
  Country: None (occurrence: None)
  Receive Date: 20090805
  Receipt Date: 20090728
  Transmission Date: 20100115
  Serious: Yes (Other)
  Sender: FDA-Public Use
  Company Number: US-GILEAD-2009-0023355

PATIENT
  Age: 44 Year
  Sex: Male

DRUGS (1)
  1. HEPSERA [Suspect]
     Indication: HEPATITIS B VIRUS TEST
     Route: 048
     Dates: start: 20030101

REACTIONS (3)
  - ATAXIA [None]
  - NEUROPATHY PERIPHERAL [None]
  - RENAL FAILURE [None]
